FAERS Safety Report 9862799 (Version 1)
Quarter: 2014Q1

REPORT INFORMATION
  Report Type: Spontaneous
  Country: US (occurrence: US)
  Receive Date: 20140203
  Receipt Date: 20140203
  Transmission Date: 20141002
  Serious: Yes (Hospitalization)
  Sender: FDA-Public Use
  Company Number: PHHY2014US008883

PATIENT
  Age: 39 Year
  Sex: Male

DRUGS (3)
  1. PREDNISONE [Suspect]
     Indication: PULMONARY SARCOIDOSIS
     Dosage: 40 MG, DAILY
  2. PREDNISONE [Suspect]
     Dosage: 25 MG, DAILY
  3. PREDNISONE [Suspect]
     Dosage: 40 MG, DAILY

REACTIONS (9)
  - Pneumatosis intestinalis [Unknown]
  - Gastrointestinal mucosal disorder [Unknown]
  - Abdominal pain [Unknown]
  - Abdominal tenderness [Unknown]
  - Headache [Unknown]
  - Dizziness [Unknown]
  - Diarrhoea [Unknown]
  - Diabetes mellitus [Unknown]
  - Hyperglycaemia [Unknown]
